FAERS Safety Report 8237605 (Version 4)
Quarter: 2013Q2

REPORT INFORMATION
  Report Type: Report from Study
  Country: US (occurrence: US)
  Receive Date: 20111109
  Receipt Date: 20130607
  Transmission Date: 20140414
  Serious: Yes (Hospitalization)
  Sender: FDA-Public Use
  Company Number: US-UCBSA-044843

PATIENT
  Age: 26 Year
  Sex: Female
  Weight: 49.9 kg

DRUGS (39)
  1. CIMZIA [Suspect]
     Indication: CROHN^S DISEASE
     Route: 058
     Dates: start: 20100718
  2. CIMZIA [Suspect]
     Indication: CROHN^S DISEASE
     Route: 058
     Dates: start: 20100504, end: 20100704
  3. CIMZIA [Suspect]
     Indication: CROHN^S DISEASE
     Route: 058
     Dates: start: 20100304, end: 20100404
  4. ASACOL [Concomitant]
     Indication: CROHN^S DISEASE
     Dates: start: 19991105, end: 20120815
  5. ASACOL [Concomitant]
     Indication: CROHN^S DISEASE
  6. PREDNISONE [Concomitant]
     Indication: CROHN^S DISEASE
     Dosage: DAILY DOSE: 40 MG
     Dates: start: 201108
  7. PREDNISONE [Concomitant]
     Indication: CROHN^S DISEASE
     Dosage: DAILY DOSE: 60 MG
     Route: 048
     Dates: start: 201106
  8. PREDNISONE [Concomitant]
     Indication: CROHN^S DISEASE
     Route: 042
     Dates: start: 201106, end: 201106
  9. PREDNISONE [Concomitant]
     Indication: CROHN^S DISEASE
     Dosage: 60 MG
     Dates: end: 201106
  10. PREDNISONE [Concomitant]
     Indication: CROHN^S DISEASE
     Dosage: DAILY DOSE: 10 MG
     Route: 048
     Dates: start: 20110609
  11. PREDNISONE [Concomitant]
     Indication: CROHN^S DISEASE
     Dosage: DAILY DOSE: 20 MG
     Route: 048
     Dates: start: 20110526, end: 20110608
  12. PREDNISONE [Concomitant]
     Indication: CROHN^S DISEASE
     Dosage: DAILY DOSE: 25 MG
     Route: 048
     Dates: start: 20110512, end: 20110525
  13. PREDNISONE [Concomitant]
     Indication: CROHN^S DISEASE
     Dosage: DAILY DOSE: 40 MG
     Route: 048
     Dates: start: 20110428, end: 20110511
  14. PREDNISONE [Concomitant]
     Indication: CROHN^S DISEASE
     Dosage: DAILY DOSE: 50 MG
     Route: 048
     Dates: start: 20110414, end: 20110427
  15. PREDNISONE [Concomitant]
     Indication: CROHN^S DISEASE
     Dosage: DAILY DOSE: 60 MG
     Route: 048
     Dates: start: 20110331, end: 20110413
  16. PREDNISONE [Concomitant]
     Indication: CROHN^S DISEASE
     Dates: start: 20081111, end: 20130219
  17. PREDNISONE [Concomitant]
     Indication: CROHN^S DISEASE
     Dates: start: 2007, end: 2007
  18. PREDNISONE [Concomitant]
     Indication: CROHN^S DISEASE
     Dates: start: 2004, end: 2004
  19. PREDNISONE [Concomitant]
     Indication: CROHN^S DISEASE
     Dates: start: 2002, end: 2002
  20. AUGMENTIN [Concomitant]
     Indication: CROHN^S DISEASE
     Dates: start: 20110603, end: 20110613
  21. AUGMENTIN [Concomitant]
     Indication: CROHN^S DISEASE
     Dates: start: 20111008, end: 20111019
  22. KEFLEX [Concomitant]
     Indication: CROHN^S DISEASE
     Dates: start: 20110811, end: 20110823
  23. KEFLEX [Concomitant]
     Indication: CROHN^S DISEASE
     Dates: start: 20110614, end: 20110621
  24. MACROBID [Concomitant]
     Indication: CROHN^S DISEASE
     Dates: start: 20110603, end: 20111004
  25. ACYCLOVIR [Concomitant]
     Indication: CROHN^S DISEASE
     Dates: start: 20110513, end: 20110628
  26. IMODIUM [Concomitant]
     Indication: CROHN^S DISEASE
  27. DIPHENOXYLATE WITH ATROPINE [Concomitant]
     Indication: CROHN^S DISEASE
  28. OXYCODONE [Concomitant]
     Indication: PAIN
     Dosage: ONE TABLET EVERY FOUR TO SIX HOURS
  29. PANTOPRAZOLE [Concomitant]
     Route: 048
  30. NYSTATIN [Concomitant]
     Dosage: FOUR TIMES DAILY
  31. PERIDEX [Concomitant]
     Dosage: THREE TIMES DAILY
  32. PRENATAL VITAMINS [Concomitant]
  33. ALBUTEROL MDI [Concomitant]
  34. OMEPRAZOLE [Concomitant]
     Route: 048
  35. ZOLOFT [Concomitant]
     Dosage: DAILY DOSE:50 MG
     Route: 048
  36. LOMOTIL [Concomitant]
     Indication: DIARRHOEA
     Dosage: 2.5-0.025MG TABS, TAKE ONE TID PRN
     Route: 048
  37. PROMETHAZINE [Concomitant]
     Indication: NAUSEA
     Dosage: 25MG BID PRN
     Route: 048
  38. FOL CAPS OMEGA 3 [Concomitant]
  39. PREPARATION H [Concomitant]
     Dosage: 4 TIMES AS NEEDED

REACTIONS (4)
  - Premature delivery [Recovered/Resolved]
  - Crohn^s disease [Recovered/Resolved]
  - Urinary tract infection [Recovered/Resolved]
  - Pregnancy [Recovered/Resolved]
